FAERS Safety Report 18596949 (Version 1)
Quarter: 2020Q4

REPORT INFORMATION
  Report Type: Spontaneous
  Country: NL (occurrence: ES)
  Receive Date: 20201209
  Receipt Date: 20201209
  Transmission Date: 20210114
  Serious: Yes (Life-Threatening)
  Sender: FDA-Public Use
  Company Number: ES-FRESENIUS KABI-FK202012854

PATIENT
  Age: 5 Year
  Sex: Male
  Weight: 21 kg

DRUGS (3)
  1. ATRACURIUM [Suspect]
     Active Substance: ATRACURIUM
     Indication: INDUCTION OF ANAESTHESIA
     Dosage: 10MG
     Route: 040
     Dates: start: 20201103, end: 20201103
  2. PROPOFOL (MANUFACTURER UNKNOWN) [Suspect]
     Active Substance: PROPOFOL
     Indication: INDUCTION OF ANAESTHESIA
     Dosage: 80 MG TOTAL
     Route: 040
     Dates: start: 20201103, end: 20201103
  3. FENTANYL. [Suspect]
     Active Substance: FENTANYL
     Indication: INDUCTION OF ANAESTHESIA
     Dosage: 40MCG
     Route: 040
     Dates: start: 20201103, end: 20201103

REACTIONS (2)
  - Anaphylactic shock [Recovered/Resolved]
  - Airway complication of anaesthesia [Recovered/Resolved]

NARRATIVE: CASE EVENT DATE: 20201103
